FAERS Safety Report 5099125-X (Version None)
Quarter: 2006Q3

REPORT INFORMATION
  Report Type: 
  Country: None (occurrence: None)
  Receive Date: 20060731
  Receipt Date: 20051021
  Transmission Date: 20061208
  Serious: Yes (Hospitalization)
  Sender: FDA-Public Use
  Company Number: 218835

PATIENT
  Age: 63 Year
  Sex: Male

DRUGS (2)
  1. RITUXAN [Suspect]
     Indication: LYMPHOMA
     Dates: start: 20020101
  2. BLOOD TRANSFUSION NOS(BLOOD,WHOLE) [Suspect]

REACTIONS (1)
  - PANCYTOPENIA [None]
